FAERS Safety Report 9893060 (Version 4)
Quarter: 2014Q2

REPORT INFORMATION
  Report Type: Spontaneous
  Country: CA (occurrence: CA)
  Receive Date: 20140213
  Receipt Date: 20140507
  Transmission Date: 20141212
  Serious: Yes (Hospitalization, Disabling, Other)
  Sender: FDA-Public Use
  Company Number: CA-ROCHE-1347639

PATIENT
  Sex: Female

DRUGS (6)
  1. XOLAIR [Suspect]
     Indication: ASTHMA
     Route: 058
     Dates: start: 20130715, end: 20140319
  2. SINGULAIR [Concomitant]
  3. SYMBICORT [Concomitant]
  4. ALVESCO [Concomitant]
  5. ATROVENT [Concomitant]
  6. PREDNISONE [Concomitant]
     Route: 065

REACTIONS (7)
  - Apparent death [Unknown]
  - Urinary incontinence [Recovered/Resolved with Sequelae]
  - Cyst [Recovered/Resolved with Sequelae]
  - Pneumonia [Unknown]
  - Escherichia infection [Recovered/Resolved with Sequelae]
  - Asthma [Unknown]
  - Dizziness [Recovered/Resolved]
